FAERS Safety Report 4785511-1 (Version None)
Quarter: 2005Q4

REPORT INFORMATION
  Report Type: 
  Country: None (occurrence: None)
  Receive Date: 20051003
  Receipt Date: 20050920
  Transmission Date: 20060501
  Serious: Yes (Hospitalization)
  Sender: FDA-Public Use
  Company Number: CZ-JNJFOC-20050905512

PATIENT
  Sex: Female

DRUGS (5)
  1. REMICADE [Suspect]
     Indication: RHEUMATOID ARTHRITIS
     Dosage: 3MG/KG
     Route: 042
  2. PREDNISON [Concomitant]
  3. METHOTREXATE [Concomitant]
  4. TOPAMAX [Concomitant]
  5. MOVALIS [Concomitant]

REACTIONS (2)
  - FALL [None]
  - FRACTURE [None]
